FAERS Safety Report 6490205-0 (Version None)
Quarter: 2009Q4

REPORT INFORMATION
  Report Type: 
  Country: None (occurrence: None)
  Receive Date: 20091124
  Receipt Date: 20090730
  Transmission Date: 20100525
  Serious: Yes (Other)
  Sender: FDA-Public Use
  Company Number: DSA_40515_2009

PATIENT
  Age: 53 Year
  Sex: Female

DRUGS (3)
  1. APLENZIN [Suspect]
     Indication: DEPRESSION
     Dosage: (348 MG QD ORAL)
     Route: 048
     Dates: start: 20090601, end: 20090101
  2. BUPROPION HCL [Concomitant]
  3. ADDERALL 10 [Concomitant]

REACTIONS (1)
  - SUICIDAL IDEATION [None]
